FAERS Safety Report 4398394-9 (Version None)
Quarter: 2004Q3

REPORT INFORMATION
  Report Type: 
  Country: None (occurrence: None)
  Receive Date: 20040715
  Receipt Date: 20040624
  Transmission Date: 20050211
  Serious: Yes (Hospitalization, Disabling)
  Sender: FDA-Public Use
  Company Number: JP-MERCK-0406USA02278

PATIENT
  Age: 91 Year
  Sex: Female

DRUGS (4)
  1. NORVASC [Suspect]
     Indication: HYPERTENSION
     Route: 048
     Dates: start: 20020422, end: 20040615
  2. PERIACTIN [Suspect]
     Indication: RASH
     Route: 048
     Dates: start: 20040205, end: 20040614
  3. GLIBENCLAMID [Suspect]
     Indication: DIABETES MELLITUS
     Route: 048
     Dates: start: 20020422, end: 20040615
  4. MAGNESIUM OXIDE [Concomitant]
     Indication: CONSTIPATION
     Route: 048
     Dates: start: 20040205

REACTIONS (1)
  - HEPATIC FUNCTION ABNORMAL [None]
